FAERS Safety Report 4568725-5 (Version None)
Quarter: 2005Q1

REPORT INFORMATION
  Report Type: 
  Country: None (occurrence: None)
  Receive Date: 20050202
  Receipt Date: 20050114
  Transmission Date: 20050727
  Serious: Yes (Other)
  Sender: FDA-Public Use
  Company Number: US-MERCK-0501USA02772

PATIENT
  Age: 10 Year
  Sex: Male

DRUGS (1)
  1. ELSPAR [Suspect]
     Indication: ACUTE LYMPHOCYTIC LEUKAEMIA
     Route: 042

REACTIONS (3)
  - COAGULATION TEST ABNORMAL [None]
  - HAEMORRHAGE INTRACRANIAL [None]
  - HYPOCOAGULABLE STATE [None]
